FAERS Safety Report 12811675 (Version 2)
Quarter: 2017Q2

REPORT INFORMATION
  Report Type: Spontaneous
  Country: ES (occurrence: ES)
  Receive Date: 20161005
  Receipt Date: 20170606
  Transmission Date: 20170830
  Serious: No
  Sender: FDA-Public Use
  Company Number: ES-PFIZER INC-2016457172

PATIENT
  Age: 26 Year
  Sex: Female

DRUGS (1)
  1. DOXYCYCLINE HYCLATE. [Suspect]
     Active Substance: DOXYCYCLINE HYCLATE
     Indication: URINARY TRACT INFECTION
     Dosage: 50 MG, 3X/DAY (EVERY 8 H)

REACTIONS (1)
  - Acute generalised exanthematous pustulosis [Recovered/Resolved]
